FAERS Safety Report 16270194 (Version 1)
Quarter: 2019Q2

REPORT INFORMATION
  Report Type: Spontaneous
  Country: US (occurrence: US)
  Receive Date: 20190329
  Receipt Date: 20190329
  Transmission Date: 20190711
  Serious: No
  Sender: FDA-Public Use
  Company Number: None

PATIENT
  Age: 87 Year
  Sex: Female

DRUGS (1)
  1. EXEMESTANE 25MG TAB [Suspect]
     Active Substance: EXEMESTANE
     Indication: BREAST CANCER
     Route: 048
     Dates: start: 201802

REACTIONS (4)
  - Hyperparathyroidism [None]
  - Blood calcium increased [None]
  - Vitamin D decreased [None]
  - Chronic kidney disease [None]

NARRATIVE: CASE EVENT DATE: 20190329
